FAERS Safety Report 24463113 (Version 2)
Quarter: 2024Q4

REPORT INFORMATION
  Report Type: Spontaneous
  Country: FR (occurrence: FR)
  Receive Date: 20241018
  Receipt Date: 20241106
  Transmission Date: 20250114
  Serious: Yes (Life-Threatening, Other)
  Sender: BAXTER
  Company Number: None

PATIENT
  Age: 18 Month
  Sex: Male
  Weight: 10.2 kg

DRUGS (5)
  1. PROPOFOL [Suspect]
     Active Substance: PROPOFOL
     Indication: Induction of anaesthesia
     Dosage: (PROPOFOL BAXTER) 30 MG, 1 TOTAL
     Route: 042
     Dates: start: 20240924, end: 20240924
  2. RINGER AGUETTANT [Concomitant]
     Dosage: UNK
     Route: 042
     Dates: start: 20240924, end: 20240924
  3. GLUCOR [Concomitant]
     Active Substance: ACARBOSE
     Dosage: UNK
     Route: 042
     Dates: start: 20240924, end: 20240924
  4. SUFENTA [Concomitant]
     Active Substance: SUFENTANIL CITRATE
     Dosage: 2 MG, 1 TOTAL
     Route: 042
     Dates: start: 20240924, end: 20240924
  5. CALCIUM CHLORIDE HEXAHYDRATE [Concomitant]
     Active Substance: CALCIUM CHLORIDE HEXAHYDRATE
     Dosage: UNK
     Route: 042
     Dates: start: 20240924, end: 20240924

REACTIONS (3)
  - Incorrect route of product administration [Recovered/Resolved]
  - Sinus tachycardia [Recovered/Resolved]
  - Electrocardiogram repolarisation abnormality [Recovered/Resolved]

NARRATIVE: CASE EVENT DATE: 20240924
